FAERS Safety Report 8958855 (Version 1)
Quarter: 2012Q4

REPORT INFORMATION
  Report Type: 
  Country: US (occurrence: US)
  Receive Date: 20121212
  Receipt Date: 20121212
  Transmission Date: 20130627
  Serious: Yes (Hospitalization, Other)
  Sender: FDA-Public Use
  Company Number: US-ELI_LILLY_AND_COMPANY-US201212000337

PATIENT
  Sex: Female

DRUGS (3)
  1. CYMBALTA [Suspect]
     Indication: DEPRESSION
     Dosage: 60 mg, qd
     Dates: start: 2008
  2. LISINOPRIL [Concomitant]
  3. FLEXERIL [Concomitant]

REACTIONS (7)
  - Pulmonary embolism [Unknown]
  - Neck pain [Not Recovered/Not Resolved]
  - Neoplasm [Unknown]
  - Back pain [Not Recovered/Not Resolved]
  - Emotional disorder [Unknown]
  - Tension [Unknown]
  - Drug ineffective [Unknown]
